FAERS Safety Report 7862753-X (Version None)
Quarter: 2011Q4

REPORT INFORMATION
  Report Type: 
  Country: None (occurrence: None)
  Receive Date: 20111027
  Receipt Date: 20101112
  Transmission Date: 20120403
  Serious: No
  Sender: FDA-Public Use
  Company Number: US-AMGEN-USASP2010003074

PATIENT
  Age: 42 Year
  Sex: Male
  Weight: 84.354 kg

DRUGS (1)
  1. ENBREL [Suspect]
     Indication: RHEUMATOID ARTHRITIS
     Dosage: 50 MG, QWK
     Route: 058
     Dates: start: 20101008

REACTIONS (2)
  - GASTROINTESTINAL HYPERMOTILITY [None]
  - FLATULENCE [None]
